FAERS Safety Report 9358011 (Version 1)
Quarter: 2013Q3

REPORT INFORMATION
  Report Type: Spontaneous
  Country: US (occurrence: None)
  Receive Date: 20130619
  Receipt Date: 20130619
  Transmission Date: 20140515
  Serious: Yes (Other)
  Sender: FDA-Public Use
  Company Number: None

PATIENT
  Age: 52 Year
  Sex: Female
  Weight: 46.4 kg

DRUGS (1)
  1. FRESENIUS SALINE [Suspect]
     Dates: start: 20130507

REACTIONS (6)
  - Chills [None]
  - Pyrexia [None]
  - Nausea [None]
  - Heart rate increased [None]
  - Upper respiratory tract infection [None]
  - Nasopharyngitis [None]
